FAERS Safety Report 7311446-6 (Version None)
Quarter: 2011Q1

REPORT INFORMATION
  Report Type: 
  Country: None (occurrence: None)
  Receive Date: 20110224
  Receipt Date: 20110204
  Transmission Date: 20110831
  Serious: Yes (Death, Hospitalization)
  Sender: FDA-Public Use
  Company Number: FR-BAYER-201039671GPV

PATIENT
  Sex: Male
  Weight: 84 kg

DRUGS (14)
  1. NEXAVAR [Suspect]
     Indication: HEPATIC NEOPLASM MALIGNANT
     Dosage: 800 MG (DAILY DOSE), QD, ORAL
     Route: 048
     Dates: start: 20100429
  2. PREDNISOLONE [Concomitant]
     Dosage: 5 MG (DAILY DOSE), QD, ORAL
     Route: 048
     Dates: start: 20100911
  3. SKENAN [Concomitant]
     Indication: PAIN
     Dosage: 40 MG (DAILY DOSE), QD, ORAL
     Route: 048
     Dates: start: 20100911
  4. SKENAN [Concomitant]
     Dosage: 120 MG (DAILY DOSE), QD, ORAL
     Route: 048
     Dates: start: 20100625, end: 20100723
  5. NEXIUM [Concomitant]
     Indication: GASTROOESOPHAGEAL REFLUX DISEASE
     Dosage: 20 MG (DAILY DOSE), QD, ORAL
     Route: 048
     Dates: start: 20100101
  6. XANAX [Concomitant]
     Dosage: 0.25 MG (DAILY DOSE), ,
     Dates: start: 20100601
  7. CALCIDOSE VITAMINE D [Concomitant]
     Dosage: 2 DF (DAILY DOSE), QD,
     Dates: start: 20100901
  8. ACETAMINOPHEN [Concomitant]
     Indication: PAIN
     Dosage: ON DEMAND
     Route: 048
     Dates: start: 20100901
  9. ALDACTONE [Concomitant]
     Indication: ASCITES
  10. FORLAX [Concomitant]
     Indication: CONSTIPATION
     Dosage: 1 SACHET
     Route: 048
     Dates: start: 20100601
  11. ALDACTONE [Concomitant]
     Indication: OEDEMA
     Dosage: 50 MG (DAILY DOSE), QD, ORAL
     Route: 048
     Dates: start: 20100910, end: 20100918
  12. ARIXTRA [Concomitant]
     Dosage: 2.5 MG (DAILY DOSE), QD, INTRAVENOUS
     Route: 042
     Dates: start: 20100601
  13. DIFFU K [Concomitant]
     Dosage: 2 DF (DAILY DOSE), QD,
     Dates: start: 20100901
  14. ALDACTONE [Suspect]
     Indication: GASTROOESOPHAGEAL REFLUX DISEASE
     Dosage: 75 MG (DAILY DOSE), QD, ORAL
     Route: 048
     Dates: start: 20100918

REACTIONS (5)
  - BONE PAIN [None]
  - ASCITES [None]
  - CONFUSIONAL STATE [None]
  - HEPATIC NEOPLASM MALIGNANT [None]
  - OEDEMA [None]
